FAERS Safety Report 4560800-4 (Version None)
Quarter: 2005Q1

REPORT INFORMATION
  Report Type: 
  Country: None (occurrence: None)
  Receive Date: 20050124
  Receipt Date: 20050106
  Transmission Date: 20050727
  Serious: No
  Sender: FDA-Public Use
  Company Number: 9690

PATIENT
  Age: 75 Year
  Sex: Male

DRUGS (4)
  1. CYTARABINE [Suspect]
     Indication: ACUTE MYELOID LEUKAEMIA
     Route: 042
     Dates: start: 20020408, end: 20020412
  2. FLUDARABINE [Concomitant]
  3. LENOGRASTIM [Concomitant]
  4. COTRIM [Concomitant]

REACTIONS (8)
  - COUGH [None]
  - DYSPNOEA EXACERBATED [None]
  - NEUTROPENIC SEPSIS [None]
  - PHARYNGITIS [None]
  - PULMONARY ALVEOLAR HAEMORRHAGE [None]
  - PULMONARY MYCOSIS [None]
  - PYREXIA [None]
  - RHONCHI [None]
